FAERS Safety Report 6478822-5 (Version None)
Quarter: 2009Q4

REPORT INFORMATION
  Report Type: 
  Country: None (occurrence: None)
  Receive Date: 20091207
  Receipt Date: 20091202
  Transmission Date: 20100525
  Serious: Yes (Other)
  Sender: FDA-Public Use
  Company Number: US-BRISTOL-MYERS SQUIBB COMPANY-14881544

PATIENT

DRUGS (3)
  1. COUMADIN [Suspect]
  2. DIGOXIN [Suspect]
  3. MULTAQ [Suspect]

REACTIONS (1)
  - CARDIAC TAMPONADE [None]
